FAERS Safety Report 22273669 (Version 2)
Quarter: 2023Q4

REPORT INFORMATION
  Report Type: Spontaneous
  Country: US (occurrence: US)
  Receive Date: 20230502
  Receipt Date: 20231010
  Transmission Date: 20240110
  Serious: Yes (Hospitalization, Other)
  Sender: FDA-Public Use
  Company Number: US-PFIZER INC-202300170296

PATIENT
  Age: 73 Year
  Sex: Male
  Weight: 77.11 kg

DRUGS (20)
  1. VYNDAMAX [Suspect]
     Active Substance: TAFAMIDIS
     Indication: Amyloidosis
     Dosage: 61 MG, DAILY
     Route: 048
  2. VYNDAMAX [Suspect]
     Active Substance: TAFAMIDIS
     Dosage: 1 DF, DAILY
     Route: 048
  3. JARDIN D [Concomitant]
     Indication: Cardiac failure
     Dosage: 10 MG, 1X/DAY
     Route: 048
  4. JARDIN D [Concomitant]
     Indication: Diabetes mellitus
  5. ASPIRIN [Concomitant]
     Active Substance: ASPIRIN
     Indication: Cardiac disorder
     Dosage: 81 MG, 1X/DAY
     Route: 048
  6. FUROSEMIDE [Concomitant]
     Active Substance: FUROSEMIDE
     Indication: Discharge
     Dosage: 20 MG, AS NEEDED
     Route: 048
  7. ATORVASTATIN [Concomitant]
     Active Substance: ATORVASTATIN
     Indication: Dental plaque
     Dosage: 80 MG, 1X/DAY [ONE IN THE EVENING]
     Route: 048
  8. GLIPIZIDE [Concomitant]
     Active Substance: GLIPIZIDE
     Indication: Diabetes mellitus
     Dosage: 10 MG, 1X/DAY
     Route: 048
  9. PREGABALIN [Concomitant]
     Active Substance: PREGABALIN
     Dosage: 75 MG, 2X/DAY [ONE MORNING AND ONE EVENING]
     Route: 048
  10. METOPROLOL SUCCINATE [Concomitant]
     Active Substance: METOPROLOL SUCCINATE
     Indication: Blood pressure abnormal
     Dosage: 50 MG, 1X/DAY
     Route: 048
  11. CLOPIDOGREL [Concomitant]
     Active Substance: CLOPIDOGREL BISULFATE
     Dosage: 75 MG, 1X/DAY
     Route: 048
  12. DULOXETINE [Concomitant]
     Active Substance: DULOXETINE
     Indication: Arthritis
     Dosage: 6 MG, 1X/DAY
     Route: 048
  13. ALLOPURINOL [Concomitant]
     Active Substance: ALLOPURINOL
     Indication: Gout
     Dosage: 300 MG, 1X/DAY (300MG TABLET ONE PER DAY BY MOUTH)
     Route: 048
  14. LORAZEPAM [Concomitant]
     Active Substance: LORAZEPAM
     Indication: Anxiety
     Dosage: 1 MG, AS NEEDED (1MG TABLET AT NIGHT AS NEEDED BY MOUTH)
     Route: 048
  15. VITAMIN B12 [Concomitant]
     Active Substance: CYANOCOBALAMIN
     Indication: Cardiac disorder
     Dosage: 1000 UG, 1X/DAY
     Route: 048
  16. DOCONEXENT\ICOSAPENT\TOCOPHEROL [Concomitant]
     Active Substance: DOCONEXENT\ICOSAPENT\TOCOPHEROL
     Indication: Dental plaque
     Dosage: 1000 MG, 1X/DAY (1000MG ONCE PER DAY BY MOUTH)
     Route: 048
  17. MILRINONE [Concomitant]
     Active Substance: MILRINONE
     Indication: Amyloidosis
     Dosage: 62 MG, ALTERNATE DAY (62MG IN D5W 310MG BAG ONCE EVERY OTHER DAY; THROUGH THE PICC LINE)
  18. SODIUM CHLORIDE [Concomitant]
     Active Substance: SODIUM CHLORIDE
     Indication: Central venous catheterisation
     Dosage: 10 ML,1X/DAY [THROUGH PICC LINE]
     Route: 042
  19. TRESIBA [Concomitant]
     Active Substance: INSULIN DEGLUDEC
     Indication: Diabetes mellitus
     Dosage: 12 ML, DAILY (INJECTION IN HIS ABDOMEN )
  20. HEPARIN [Concomitant]
     Active Substance: HEPARIN SODIUM
     Indication: Central venous catheterisation
     Dosage: UNK, 1X/DAY [5ML SYR PSLSH, THROUGH THE PICC LINE]
     Route: 042

REACTIONS (6)
  - Fall [Unknown]
  - Loss of consciousness [Unknown]
  - Blood pressure decreased [Unknown]
  - Dizziness [Unknown]
  - Confusional state [Unknown]
  - Off label use [Unknown]

NARRATIVE: CASE EVENT DATE: 20230424
